FAERS Safety Report 9542991 (Version 1)
Quarter: 2013Q2

REPORT INFORMATION
  Report Type: Spontaneous
  Country: US (occurrence: None)
  Receive Date: 20130524
  Receipt Date: 20130524
  Transmission Date: 20140414
  Serious: No
  Sender: FDA-Public Use
  Company Number: PHEH2012US025233

PATIENT
  Sex: Female
  Weight: 81.6 kg

DRUGS (10)
  1. GILENYA (FINGOLIMOD) CAPSULE, 0.5MG [Suspect]
     Indication: MULTIPLE SCLEROSIS
     Route: 048
  2. CLONAZEPAM (CLONAZEPAM) (CLONAZEPAM) [Concomitant]
  3. SIMVASTATIN (SIMVASTATIN) [Concomitant]
  4. PRAVASTATIN (PRAVASTATIN) [Concomitant]
  5. NEXIUM (AMOXICILLIN TRIHYDRATE, CLARITHROMYCIN, ESOMEPRAZOLE MAGNESIUM) [Concomitant]
  6. PROZAC (FLUOXETINE HYDROCHLORIDE) [Concomitant]
  7. AMPYRA (FAMPRIDINE) [Concomitant]
  8. PROVIGIL (MODAFINIL) [Concomitant]
  9. VITAMIN C [Concomitant]
  10. VESICARE (SOLIFENACIN SUCCINATE) [Concomitant]

REACTIONS (2)
  - Hypoaesthesia [None]
  - Paraesthesia [None]
